FAERS Safety Report 5699391-3 (Version None)
Quarter: 2008Q2

REPORT INFORMATION
  Report Type: 
  Country: None (occurrence: None)
  Receive Date: 20080407
  Receipt Date: 20080327
  Transmission Date: 20081010
  Serious: Yes (Hospitalization)
  Sender: FDA-Public Use
  Company Number: CHPA2008US05575

PATIENT
  Age: 5 Year
  Sex: Female
  Weight: 20.4 kg

DRUGS (1)
  1. TRIAMINIC THIN STRIPS COLD + COUGH (NCH)(DEXTROMETHORPHAN HYDROBROMIDE [Suspect]
     Indication: COUGH
     Dosage: ORAL
     Route: 048
     Dates: start: 20071201, end: 20071226

REACTIONS (2)
  - CONVULSION [None]
  - OVERDOSE [None]
